FAERS Safety Report 7731396-0 (Version None)
Quarter: 2011Q3

REPORT INFORMATION
  Report Type: 
  Country: None (occurrence: None)
  Receive Date: 20110906
  Receipt Date: 20110829
  Transmission Date: 20111222
  Serious: Yes (Hospitalization)
  Sender: FDA-Public Use
  Company Number: FR-PFIZER INC-2011090220

PATIENT
  Age: 66 Year
  Sex: Female

DRUGS (16)
  1. TRAMADOL HCL [Concomitant]
  2. OMEPRAZOLE [Concomitant]
  3. PREDNISOLONE [Concomitant]
  4. CLOMIPRAMINE [Concomitant]
  5. INNOHEP [Concomitant]
  6. FLAGYL [Suspect]
     Dosage: UNK
     Dates: start: 20110203, end: 20110201
  7. PYOSTACINE [Suspect]
     Dosage: UNK
     Route: 048
     Dates: start: 20110202, end: 20110201
  8. FERROUS FUMARATE [Concomitant]
  9. AMLODIPINE BESYLATE [Concomitant]
  10. ACETAMINOPHEN [Concomitant]
  11. DESLORATADINE [Concomitant]
  12. RIFAMPICIN [Suspect]
     Dosage: UNK
     Route: 048
     Dates: start: 20110202, end: 20110211
  13. LANTUS [Concomitant]
  14. ZYVOX [Suspect]
     Dosage: UNK
     Route: 048
     Dates: start: 20110201, end: 20110211
  15. CLINDAMYCIN HCL [Suspect]
     Dosage: 2400 MG A DAY
     Route: 042
     Dates: start: 20110303, end: 20110304
  16. VANCOMYCIN HCL [Suspect]
     Dosage: 30 MG/KG A DAY
     Route: 042
     Dates: start: 20110304, end: 20110307

REACTIONS (5)
  - RASH MORBILLIFORM [None]
  - ERYTHEMA [None]
  - PRURITUS GENERALISED [None]
  - RASH [None]
  - PRURITUS [None]
